APPROVED DRUG PRODUCT: ROSUVASTATIN CALCIUM
Active Ingredient: ROSUVASTATIN CALCIUM
Strength: EQ 5MG BASE
Dosage Form/Route: TABLET;ORAL
Application: A210667 | Product #001
Applicant: SUNSHINE LAKE PHARMA CO LTD
Approved: Apr 1, 2020 | RLD: No | RS: No | Type: DISCN